FAERS Safety Report 10366568 (Version 1)
Quarter: 2014Q3

REPORT INFORMATION
  Report Type: Spontaneous
  Country: GB (occurrence: None)
  Receive Date: 20140804
  Receipt Date: 20140804
  Transmission Date: 20150326
  Serious: Yes (Other)
  Sender: FDA-Public Use
  Company Number: 2014COR00036

PATIENT
  Age: 39 Year
  Sex: Female

DRUGS (2)
  1. CITALOPRAM (CITALOPRAM) UNKNOWN [Suspect]
     Active Substance: CITALOPRAM HYDROBROMIDE
  2. ALCOHOL (ALCOHOL) [Suspect]
     Active Substance: ALCOHOL

REACTIONS (7)
  - Alcohol interaction [None]
  - Amnesia [None]
  - Affect lability [None]
  - Nightmare [None]
  - Somnambulism [None]
  - Overdose [None]
  - Loss of libido [None]
